FAERS Safety Report 4717218-0 (Version None)
Quarter: 2005Q3

REPORT INFORMATION
  Report Type: 
  Country: None (occurrence: None)
  Receive Date: 20050715
  Receipt Date: 20040424
  Transmission Date: 20060218
  Serious: Yes (Life-Threatening)
  Sender: FDA-Public Use
  Company Number: 04KOR0110

PATIENT
  Sex: Female

DRUGS (5)
  1. AGGRASTAT [Suspect]
     Indication: MYOCARDIAL INFARCTION
     Dates: start: 20040220
  2. AMINOPHYLLINE [Concomitant]
  3. ASPIRIN [Concomitant]
  4. FUROSEMIDE SODIUM [Concomitant]
  5. ISOSORBIDE DINITRATE [Concomitant]

REACTIONS (3)
  - ARRHYTHMIA [None]
  - CARDIOGENIC SHOCK [None]
  - HAEMATURIA [None]
